FAERS Safety Report 5013746-1 (Version None)
Quarter: 2006Q2

REPORT INFORMATION
  Report Type: 
  Country: None (occurrence: None)
  Receive Date: 20060525
  Receipt Date: 20060515
  Transmission Date: 20061013
  Serious: Yes (Hospitalization)
  Sender: FDA-Public Use
  Company Number: 225155

PATIENT
  Age: 74 Year
  Sex: Male
  Weight: 83.7 kg

DRUGS (3)
  1. AVASTIN [Suspect]
     Indication: ADENOCARCINOMA PANCREAS
     Dosage: 10 MG/KG, DAYS 1+15
     Dates: start: 20051212, end: 20060502
  2. GEMCITABINE [Suspect]
     Indication: ADENOCARCINOMA PANCREAS
     Dosage: 1000 MG/M2, INTRAVENOUS
     Route: 042
  3. OXALIPLATIN (OXALIPLATIN) [Suspect]
     Indication: ADENOCARCINOMA PANCREAS
     Dosage: 100 MG/M2, INTRAVENOUS
     Route: 042
     Dates: start: 20051212

REACTIONS (2)
  - DEHYDRATION [None]
  - SYNCOPE [None]
